FAERS Safety Report 7405595-1 (Version None)
Quarter: 2011Q2

REPORT INFORMATION
  Report Type: 
  Country: None (occurrence: None)
  Receive Date: 20110411
  Receipt Date: 20110329
  Transmission Date: 20111010
  Serious: Yes (Disabling, Other)
  Sender: FDA-Public Use
  Company Number: PHHY2011CL25676

PATIENT
  Age: 18 Year
  Sex: Male

DRUGS (1)
  1. LEPONEX [Suspect]
     Dosage: 7 DF, PER DAY
     Dates: start: 20060612

REACTIONS (2)
  - URINARY TRACT INFECTION [None]
  - LOBAR PNEUMONIA [None]
